FAERS Safety Report 6331059-2 (Version None)
Quarter: 2009Q3

REPORT INFORMATION
  Report Type: 
  Country: None (occurrence: None)
  Receive Date: 20090827
  Receipt Date: 20090820
  Transmission Date: 20100115
  Serious: Yes (Hospitalization)
  Sender: FDA-Public Use
  Company Number: B0586891A

PATIENT
  Age: 1 Year
  Sex: Female

DRUGS (2)
  1. CLAVAMOX [Suspect]
     Indication: DRUG USE FOR UNKNOWN INDICATION
     Route: 048
     Dates: start: 20090718, end: 20090722
  2. CLAVAMOX [Suspect]
     Dosage: 771MG PER DAY
     Route: 048
     Dates: start: 20090730, end: 20090730

REACTIONS (1)
  - DRUG ERUPTION [None]
